FAERS Safety Report 10035046 (Version 1)
Quarter: 2014Q1

REPORT INFORMATION
  Report Type: Spontaneous
  Country: US (occurrence: US)
  Receive Date: 20140325
  Receipt Date: 20140325
  Transmission Date: 20141002
  Serious: No
  Sender: FDA-Public Use
  Company Number: US-009507513-1403USA004487

PATIENT
  Sex: Female

DRUGS (3)
  1. OXYTROL FOR WOMEN [Suspect]
     Indication: BLADDER SPASM
     Dosage: UNK, UNKNOWN
     Route: 062
     Dates: start: 201311
  2. OXYTROL FOR WOMEN [Suspect]
     Indication: MICTURITION URGENCY
     Dosage: UNK, UNKNOWN
     Route: 062
     Dates: start: 201311
  3. OXYTROL FOR WOMEN [Suspect]
     Indication: POLLAKIURIA

REACTIONS (5)
  - Condition aggravated [Unknown]
  - Therapeutic response unexpected [Unknown]
  - Application site erythema [Unknown]
  - Drug effect decreased [Unknown]
  - Product adhesion issue [Unknown]
